FAERS Safety Report 7164437-2 (Version None)
Quarter: 2010Q4

REPORT INFORMATION
  Report Type: 
  Country: None (occurrence: None)
  Receive Date: 20101203
  Receipt Date: 20101118
  Transmission Date: 20110411
  Serious: Yes (Hospitalization)
  Sender: FDA-Public Use
  Company Number: JPI-P-013037

PATIENT
  Age: 54 Year
  Sex: Female
  Weight: 74.8435 kg

DRUGS (7)
  1. XYREM [Suspect]
     Indication: NARCOLEPSY
     Dosage: (,2 IN 1 D),ORAL,  9 GM (4.5 GM,2 IN 1 D),ORAL
     Route: 048
     Dates: start: 20050101, end: 20100101
  2. XYREM [Suspect]
     Indication: NARCOLEPSY
     Dosage: (,2 IN 1 D),ORAL,  9 GM (4.5 GM,2 IN 1 D),ORAL
     Route: 048
     Dates: start: 20080101
  3. XYREM [Suspect]
     Indication: NARCOLEPSY
     Dosage: (,2 IN 1 D),ORAL,  9 GM (4.5 GM,2 IN 1 D),ORAL
     Route: 048
     Dates: start: 20101101
  4. VALSARTAN [Concomitant]
  5. VENLAFAXINE [Concomitant]
  6. DEXTROAMPHETAMINE AND AMPHETAMINE [Concomitant]
  7. ACETYLSALICYLIC ACID [Concomitant]

REACTIONS (3)
  - BLOOD POTASSIUM DECREASED [None]
  - FALL [None]
  - FEELING ABNORMAL [None]
